FAERS Safety Report 15098032 (Version 2)
Quarter: 2018Q3

REPORT INFORMATION
  Report Type: Spontaneous
  Country: US (occurrence: US)
  Receive Date: 20180702
  Receipt Date: 20180920
  Transmission Date: 20181010
  Serious: No
  Sender: FDA-Public Use
  Company Number: US-IGSA-SR10005230

PATIENT
  Sex: Female

DRUGS (2)
  1. GAMUNEX?C [Suspect]
     Active Substance: HUMAN IMMUNOGLOBULIN G
     Indication: PRIMARY IMMUNODEFICIENCY SYNDROME
     Dosage: UNK UNK, UNKNOWN
     Route: 065
     Dates: start: 2004
  2. ESTROGEN NOS [Concomitant]
     Active Substance: ESTROGENS
     Indication: EPILEPSY

REACTIONS (3)
  - Renal disorder [Not Recovered/Not Resolved]
  - Urine calcium increased [Not Recovered/Not Resolved]
  - Protein urine present [Not Recovered/Not Resolved]
